FAERS Safety Report 9305674 (Version 2)
Quarter: 2013Q2

REPORT INFORMATION
  Report Type: Spontaneous
  Country: ES (occurrence: ES)
  Receive Date: 20130523
  Receipt Date: 20130530
  Transmission Date: 20140414
  Serious: Yes (Other)
  Sender: FDA-Public Use
  Company Number: ES-PFIZER INC-2013158418

PATIENT
  Age: 53 Year
  Sex: Male

DRUGS (9)
  1. LYRICA [Suspect]
     Dosage: 75 MG, 2X/DAY
     Route: 048
     Dates: start: 2013
  2. TARGIN [Suspect]
     Indication: OSTEOARTHRITIS
     Dosage: 1 DF, 4X/DAY
     Route: 048
     Dates: start: 2013
  3. NEURONTIN [Concomitant]
     Indication: SPINAL OSTEOARTHRITIS
     Dosage: 300 MG, 3X/DAY
     Route: 048
     Dates: start: 2013, end: 20130402
  4. DUROGESIC [Concomitant]
     Indication: OSTEOARTHRITIS
     Dosage: 25 UG, EVERY 3 DAYS
     Route: 061
     Dates: start: 2013, end: 20130402
  5. OMEPRAZOLE [Concomitant]
     Indication: PROPHYLAXIS
     Dosage: 20 MG, 1X/DAY
     Route: 048
  6. PARACETAMOL [Concomitant]
     Dosage: 1 G, 3X/DAY
     Route: 048
  7. KETAZOLAM [Concomitant]
     Dosage: 45 MG, 1X/DAY
     Route: 048
     Dates: start: 2013
  8. CELEBREX [Concomitant]
     Indication: OSTEOARTHRITIS
     Dosage: 200 MG, 1X/DAY
     Route: 048
  9. ORFIDAL [Concomitant]
     Dosage: 1 MG, 3X/DAY
     Route: 048

REACTIONS (2)
  - Ejaculation delayed [Recovered/Resolved]
  - Erectile dysfunction [Unknown]
